FAERS Safety Report 6335702-3 (Version None)
Quarter: 2009Q3

REPORT INFORMATION
  Report Type: 
  Country: None (occurrence: None)
  Receive Date: 20090828
  Receipt Date: 20090804
  Transmission Date: 20100115
  Serious: Yes (Hospitalization)
  Sender: FDA-Public Use
  Company Number: 2008-181666-NL

PATIENT
  Age: 36 Year
  Sex: Female
  Weight: 101.6 kg

DRUGS (3)
  1. NUVARING [Suspect]
     Indication: DRUG USE FOR UNKNOWN INDICATION
     Dates: start: 20051201, end: 20071115
  2. PENICILLIN [Concomitant]
  3. CALTRATE [Concomitant]

REACTIONS (9)
  - ABDOMINAL PAIN [None]
  - ANXIETY [None]
  - BLOOD GLUCOSE INCREASED [None]
  - CHEST DISCOMFORT [None]
  - DEEP VEIN THROMBOSIS [None]
  - DYSPNOEA [None]
  - HAEMORRHOIDS [None]
  - IRRITABLE BOWEL SYNDROME [None]
  - URTICARIA [None]
